FAERS Safety Report 9857590 (Version 2)
Quarter: 2014Q1

REPORT INFORMATION
  Report Type: Report from Study
  Country: GB (occurrence: GB)
  Receive Date: 20140131
  Receipt Date: 20140218
  Transmission Date: 20141002
  Serious: Yes (Hospitalization)
  Sender: FDA-Public Use
  Company Number: GB-ROCHE-1337382

PATIENT
  Sex: Male
  Weight: 114 kg

DRUGS (3)
  1. RITUXIMAB [Suspect]
     Indication: RHEUMATOID ARTHRITIS
     Dosage: ON 15/AUG/2013, HE RECEIVED LAST DOSE OF RITUXIMAB PRIOR TO SERIOUS ADVERSE EVENT.
     Route: 065
     Dates: start: 20110901
  2. SULPHASALAZINE [Concomitant]
  3. METHOTREXATE [Concomitant]

REACTIONS (4)
  - Dyspnoea [Unknown]
  - Palpitations [Unknown]
  - Atypical pneumonia [Unknown]
  - Prostate cancer [Recovered/Resolved]
